FAERS Safety Report 6126169-9 (Version None)
Quarter: 2009Q1

REPORT INFORMATION
  Report Type: 
  Country: None (occurrence: None)
  Receive Date: 20090320
  Receipt Date: 20090316
  Transmission Date: 20090719
  Serious: Yes (Hospitalization, Other)
  Sender: FDA-Public Use
  Company Number: B0551957A

PATIENT
  Age: 48 Year
  Sex: Female

DRUGS (8)
  1. PAXIL [Suspect]
     Indication: DEPRESSION
     Dosage: 20MG PER DAY
     Route: 048
     Dates: start: 20081208, end: 20081215
  2. LUVOX [Suspect]
     Indication: DEPRESSION
     Dosage: 150MG THREE TIMES PER DAY
     Route: 048
     Dates: start: 20050101, end: 20081212
  3. LUVOX [Suspect]
     Dosage: 50MG TWICE PER DAY
     Route: 048
     Dates: start: 20081213, end: 20081215
  4. RESLIN [Suspect]
     Indication: SLEEP DISORDER
     Dosage: 200MG TWICE PER DAY
     Route: 048
     Dates: end: 20081212
  5. RESLIN [Suspect]
     Dosage: 25MG TWICE PER DAY
     Route: 048
     Dates: start: 20081213, end: 20081215
  6. MYSLEE [Concomitant]
     Route: 048
  7. LANDSEN [Concomitant]
     Route: 048
  8. SILECE [Concomitant]
     Route: 065

REACTIONS (3)
  - GAIT DISTURBANCE [None]
  - PARKINSONIAN GAIT [None]
  - PARKINSONISM [None]
